FAERS Safety Report 17772361 (Version 2)
Quarter: 2020Q2

REPORT INFORMATION
  Report Type: Report from Study
  Country: AR (occurrence: AR)
  Receive Date: 20200512
  Receipt Date: 20200527
  Transmission Date: 20200714
  Serious: Yes (Death, Hospitalization, Other)
  Sender: FDA-Public Use
  Company Number: AR-BRISTOL-MYERS SQUIBB COMPANY-BMS-2020-036949

PATIENT
  Sex: Male

DRUGS (1)
  1. APIXABAN [Suspect]
     Active Substance: APIXABAN
     Indication: PRODUCT USED FOR UNKNOWN INDICATION
     Dosage: 5 MILLIGRAM
     Route: 065

REACTIONS (8)
  - Pneumonia [Unknown]
  - Urinary retention [Unknown]
  - Nervousness [Unknown]
  - Aggression [Unknown]
  - Senile dementia [Unknown]
  - General physical health deterioration [Unknown]
  - Thinking abnormal [Unknown]
  - Cystitis [Unknown]
